FAERS Safety Report 10496891 (Version 2)
Quarter: 2015Q1

REPORT INFORMATION
  Report Type: Report from Study
  Country: US (occurrence: US)
  Receive Date: 20141006
  Receipt Date: 20150321
  Transmission Date: 20150720
  Serious: Yes (Hospitalization)
  Sender: FDA-Public Use
  Company Number: US-BIOGENIDEC-2014BI098634

PATIENT
  Age: 57 Year
  Sex: Female
  Weight: 54 kg

DRUGS (16)
  1. SENOKOT [Concomitant]
     Active Substance: SENNOSIDES
     Dates: start: 2000
  2. METOPROLOL ER [Concomitant]
     Active Substance: METOPROLOL SUCCINATE
     Dates: start: 2014
  3. METOPROLOL ER [Concomitant]
     Active Substance: METOPROLOL SUCCINATE
  4. LINZESS [Concomitant]
     Active Substance: LINACLOTIDE
  5. SANCTURA [Concomitant]
     Active Substance: TROSPIUM CHLORIDE
  6. VALACYCLOVIR HYDROCHLORIDE. [Concomitant]
     Active Substance: VALACYCLOVIR HYDROCHLORIDE
  7. GABAPENTIN. [Concomitant]
     Active Substance: GABAPENTIN
  8. BISCOLAX SUP [Concomitant]
  9. VITAMIN D3 [Concomitant]
     Active Substance: CHOLECALCIFEROL
  10. CALCIUM PLUS VITAMIN D [Concomitant]
     Active Substance: CALCIUM\VITAMIN D
  11. TECFIDERA [Suspect]
     Active Substance: DIMETHYL FUMARATE
     Indication: MULTIPLE SCLEROSIS
     Route: 048
  12. RISPERDAL [Concomitant]
     Active Substance: RISPERIDONE
  13. LAMICTAL [Concomitant]
     Active Substance: LAMOTRIGINE
     Dates: start: 2000
  14. AMPYRA [Concomitant]
     Active Substance: DALFAMPRIDINE
     Indication: GAIT DISTURBANCE
     Dates: start: 201312
  15. ASPIRIN BUFF [Concomitant]
  16. COLACE [Concomitant]
     Active Substance: DOCUSATE SODIUM
     Dates: start: 2000

REACTIONS (6)
  - Depressed mood [Unknown]
  - Fear [Not Recovered/Not Resolved]
  - Fall [Recovered/Resolved]
  - Disease progression [Not Recovered/Not Resolved]
  - Femur fracture [Recovered/Resolved]
  - Diarrhoea [Recovered/Resolved]

NARRATIVE: CASE EVENT DATE: 2014
